FAERS Safety Report 25869133 (Version 4)
Quarter: 2025Q4

REPORT INFORMATION
  Report Type: Report from Study
  Country: BR (occurrence: BR)
  Receive Date: 20251001
  Receipt Date: 20251208
  Transmission Date: 20260117
  Serious: Yes (Other)
  Sender: ALEXION PHARMACEUTICALS
  Company Number: BR-AstraZeneca-CH-00958659A

PATIENT
  Age: 4 Year
  Sex: Male

DRUGS (1)
  1. SOLIRIS [Suspect]
     Active Substance: ECULIZUMAB
     Indication: Atypical haemolytic uraemic syndrome
     Dosage: DILUTE 300 MG IN 60 ML OF 0.9% SODIUM CHLORIDE, CONTINUOUSLY, EVERY 15 DAYS

REACTIONS (7)
  - Rhabdomyolysis [Unknown]
  - Renal impairment [Unknown]
  - Seizure [Unknown]
  - Viral upper respiratory tract infection [Unknown]
  - Hypertension [Unknown]
  - Haematuria [Unknown]
  - Product prescribing error [Unknown]

NARRATIVE: CASE EVENT DATE: 20210101
